FAERS Safety Report 7901384-X (Version None)
Quarter: 2011Q4

REPORT INFORMATION
  Report Type: 
  Country: None (occurrence: None)
  Receive Date: 20111108
  Receipt Date: 20111103
  Transmission Date: 20120403
  Serious: Yes (Death, Hospitalization, Other)
  Sender: FDA-Public Use
  Company Number: PHHY2011NO96810

PATIENT
  Sex: Female

DRUGS (5)
  1. PARALGIN FORTE [Concomitant]
  2. CIMZIA [Suspect]
     Indication: RHEUMATOID ARTHRITIS
     Dosage: 200 MG, QW
     Route: 058
     Dates: start: 20110627, end: 20110905
  3. LOSARTAN POTASSIUM [Concomitant]
     Dosage: 50 MG, UNK
  4. VIVAL [Concomitant]
  5. METHOTREXATE [Suspect]
     Indication: RHEUMATOID ARTHRITIS
     Dosage: 20 MG, QW
     Route: 058
     Dates: start: 20110606, end: 20110101

REACTIONS (6)
  - CARDIAC ARREST [None]
  - HYPOGLYCAEMIA [None]
  - MYOCARDIAL INFARCTION [None]
  - CHOLECYSTITIS [None]
  - SEPSIS [None]
  - JOINT SWELLING [None]
